FAERS Safety Report 4728508-X (Version None)
Quarter: 2005Q3

REPORT INFORMATION
  Report Type: 
  Country: None (occurrence: None)
  Receive Date: 20050729
  Receipt Date: 20050216
  Transmission Date: 20060218
  Serious: No
  Sender: FDA-Public Use
  Company Number: US-GLAXOSMITHKLINE-A0545926A

PATIENT
  Age: 84 Year
  Sex: Female

DRUGS (4)
  1. ZANTAC [Suspect]
     Indication: DUODENAL ULCER
     Dosage: 150MG TWICE PER DAY
     Route: 048
  2. VASERETIC [Concomitant]
  3. NORVASC [Concomitant]
  4. PAXIL [Concomitant]

REACTIONS (1)
  - DRUG INEFFECTIVE [None]
